FAERS Safety Report 21283529 (Version 1)
Quarter: 2022Q3

REPORT INFORMATION
  Report Type: Spontaneous
  Country: US (occurrence: None)
  Receive Date: 20220901
  Receipt Date: 20220901
  Transmission Date: 20221027
  Serious: No
  Sender: FDA-Public Use
  Company Number: None

PATIENT
  Sex: Male

DRUGS (1)
  1. TALTZ [Suspect]
     Active Substance: IXEKIZUMAB
     Indication: Ankylosing spondylitis
     Dosage: 160MG ON DAY 1, THEN 80 MG EVERY 4 WEEKS??
     Route: 058
     Dates: start: 202208

REACTIONS (5)
  - Drug ineffective [None]
  - Swelling [None]
  - Pain [None]
  - Influenza like illness [None]
  - Condition aggravated [None]
